FAERS Safety Report 24305796 (Version 3)
Quarter: 2024Q4

REPORT INFORMATION
  Report Type: Spontaneous
  Country: JP (occurrence: JP)
  Receive Date: 20240911
  Receipt Date: 20241113
  Transmission Date: 20250114
  Serious: Yes (Hospitalization, Other)
  Sender: EXELIXIS
  Company Number: JP-TAKEDA-2024TJP013254

PATIENT
  Age: 7 Decade

DRUGS (3)
  1. CABOMETYX [Suspect]
     Active Substance: CABOZANTINIB S-MALATE
     Indication: Product used for unknown indication
     Dosage: 40 MG, QD
     Route: 065
  2. CABOMETYX [Suspect]
     Active Substance: CABOZANTINIB S-MALATE
     Dosage: UNK
     Route: 065
  3. NIVOLUMAB [Suspect]
     Active Substance: NIVOLUMAB
     Indication: Product used for unknown indication
     Dosage: UNK
     Route: 065

REACTIONS (6)
  - Sepsis [Unknown]
  - Multiple organ dysfunction syndrome [Unknown]
  - Infection [Unknown]
  - Hepatic function abnormal [Recovering/Resolving]
  - Pancreatitis [Unknown]
  - Hepatic function abnormal [Not Recovered/Not Resolved]
